FAERS Safety Report 6436712-8 (Version None)
Quarter: 2009Q4

REPORT INFORMATION
  Report Type: 
  Country: None (occurrence: None)
  Receive Date: 20091104
  Receipt Date: 20091023
  Transmission Date: 20100525
  Serious: Yes (Death)
  Sender: FDA-Public Use
  Company Number: THYM-1001276

PATIENT
  Age: 75 Year
  Sex: Male
  Weight: 55 kg

DRUGS (1)
  1. THYMOGLOBULIN [Suspect]
     Indication: APLASTIC ANAEMIA
     Dosage: 3.75 MG/KG, INTRAVENOUS
     Route: 042
     Dates: start: 20090629, end: 20090703

REACTIONS (1)
  - DEATH [None]
